FAERS Safety Report 8595721-3 (Version None)
Quarter: 2012Q3

REPORT INFORMATION
  Report Type: 
  Country: None (occurrence: None)
  Receive Date: 20120815
  Receipt Date: 20120809
  Transmission Date: 20120928
  Serious: Yes (Life-Threatening, Hospitalization, Disabling)
  Sender: FDA-Public Use
  Company Number: PHHY2011GB03555

PATIENT
  Age: 63 Year
  Sex: Female
  Weight: 100 kg

DRUGS (8)
  1. TINZAPARIN [Concomitant]
  2. HERCEPTIN [Suspect]
     Indication: BREAST CANCER STAGE I
     Route: 042
     Dates: start: 20100521
  3. EPIRUBICIN [Concomitant]
  4. DOCETAXEL [Suspect]
     Indication: BREAST CANCER STAGE I
     Dosage: 100 MG/M2, UNK
     Route: 042
     Dates: start: 20100430
  5. DEXAMETHASONE [Concomitant]
  6. DOCETAXEL [Suspect]
     Dosage: 75 MG/M2, UNK
     Route: 042
     Dates: end: 20100525
  7. FLUOROURACIL [Concomitant]
  8. CYCLOPHOSPHAMIDE [Concomitant]

REACTIONS (6)
  - MOBILITY DECREASED [None]
  - MYALGIA [None]
  - NECROTISING FASCIITIS [None]
  - NEUTROPENIC SEPSIS [None]
  - MULTI-ORGAN FAILURE [None]
  - PAIN [None]
